FAERS Safety Report 5930602-2 (Version None)
Quarter: 2008Q4

REPORT INFORMATION
  Report Type: 
  Country: None (occurrence: None)
  Receive Date: 20081027
  Receipt Date: 20081016
  Transmission Date: 20090506
  Serious: Yes (Hospitalization, Other)
  Sender: FDA-Public Use
  Company Number: US-JNJFOC-20070806363

PATIENT
  Sex: Male
  Weight: 89.81 kg

DRUGS (7)
  1. DURAGESIC-100 [Suspect]
     Route: 062
  2. DURAGESIC-100 [Suspect]
     Indication: PAIN
     Route: 062
  3. FENTANYL TRANSDERMAL SYSTEM [Suspect]
     Indication: PAIN
     Route: 062
  4. NEURONTIN [Concomitant]
     Route: 048
  5. CIPRO [Concomitant]
     Indication: INFECTION
     Route: 048
  6. BACLOFEN [Concomitant]
     Indication: MUSCLE RELAXANT THERAPY
     Route: 048
  7. KLONOPIN [Concomitant]
     Route: 048

REACTIONS (8)
  - CYST [None]
  - FALL [None]
  - FEELING ABNORMAL [None]
  - HIP FRACTURE [None]
  - INADEQUATE ANALGESIA [None]
  - OSTEOMYELITIS [None]
  - PAIN [None]
  - THERAPEUTIC RESPONSE DECREASED [None]
